FAERS Safety Report 4338829-0 (Version None)
Quarter: 2004Q2

REPORT INFORMATION
  Report Type: 
  Country: None (occurrence: None)
  Receive Date: 20040409
  Receipt Date: 20040330
  Transmission Date: 20050107
  Serious: Yes (Death, Hospitalization)
  Sender: FDA-Public Use
  Company Number: CERZ-10518

PATIENT
  Age: 11 Month
  Sex: Male
  Weight: 8.375 kg

DRUGS (1)
  1. CEREZYME [Suspect]
     Indication: GAUCHER'S DISEASE
     Dosage: 90 U/KG Q2WKS IV
     Route: 042
     Dates: start: 20030902, end: 20040316

REACTIONS (7)
  - CONDITION AGGRAVATED [None]
  - CONVULSION [None]
  - GASTROOESOPHAGEAL REFLUX DISEASE [None]
  - HEPATOSPLENOMEGALY [None]
  - INTERSTITIAL LUNG DISEASE [None]
  - RESPIRATORY FAILURE [None]
  - RESPIRATORY TRACT INFECTION [None]
